FAERS Safety Report 8995970 (Version 1)
Quarter: 2013Q1

REPORT INFORMATION
  Report Type: Spontaneous
  Country: US (occurrence: US)
  Receive Date: 20130103
  Receipt Date: 20130103
  Transmission Date: 20140127
  Serious: No
  Sender: FDA-Public Use
  Company Number: US-ABBOTT-12P-163-0943482-00

PATIENT
  Sex: Female
  Weight: 46.76 kg

DRUGS (4)
  1. SYNTHROID [Suspect]
     Indication: HYPERTHYROIDISM
  2. SYNTHROID [Suspect]
     Dates: start: 201205
  3. LISINOPRIL [Concomitant]
     Indication: HYPERTENSION
     Dates: start: 2009
  4. SIMVASTATIN [Concomitant]
     Indication: BLOOD CHOLESTEROL INCREASED
     Dates: start: 2009

REACTIONS (1)
  - Weight decreased [Unknown]
